FAERS Safety Report 8188354-4 (Version None)
Quarter: 2012Q1

REPORT INFORMATION
  Report Type: 
  Country: None (occurrence: None)
  Receive Date: 20120306
  Receipt Date: 20120229
  Transmission Date: 20120608
  Serious: Yes (Hospitalization)
  Sender: FDA-Public Use
  Company Number: US-NOVOPROD-346238

PATIENT
  Age: 46 Year
  Sex: Female
  Weight: 136.5 kg

DRUGS (6)
  1. ADVAIR DISKUS 100/50 [Concomitant]
     Indication: ASTHMA
     Dosage: UNKNOWN
  2. ALLEGRA [Concomitant]
     Indication: ASTHMA
     Dosage: UNKNOWN
  3. NOVOLOG [Suspect]
     Indication: TYPE 2 DIABETES MELLITUS
     Dosage: SLIDING SCALE, PATIENT DOES NOT ALWAYS GIVE FULL AMOUNT
     Route: 058
     Dates: start: 20110101, end: 20120101
  4. SYNTHROID [Concomitant]
     Indication: HYPOTHYROIDISM
     Dosage: UNKNOWN
     Route: 048
  5. SINGULAIR [Concomitant]
     Indication: ASTHMA
     Dosage: UNKNOWN
     Route: 065
  6. LASIX [Concomitant]
     Indication: PRODUCT USED FOR UNKNOWN INDICATION
     Dosage: UNKNOWN
     Route: 048

REACTIONS (3)
  - GLYCOSYLATED HAEMOGLOBIN INCREASED [None]
  - CELLULITIS [None]
  - BLOOD GLUCOSE FLUCTUATION [None]
